FAERS Safety Report 8011334-6 (Version None)
Quarter: 2011Q4

REPORT INFORMATION
  Report Type: 
  Country: None (occurrence: None)
  Receive Date: 20111228
  Receipt Date: 20111228
  Transmission Date: 20120403
  Serious: Yes (Other)
  Sender: FDA-Public Use
  Company Number: None

PATIENT
  Age: 55 Year
  Sex: Female
  Weight: 58.967 kg

DRUGS (2)
  1. ACTONEL [Suspect]
     Indication: OSTEOPOROSIS
     Dosage: 150 MG
     Route: 048
     Dates: start: 20100628, end: 20110815
  2. ACTONEL [Suspect]
     Indication: OSTEOPENIA
     Dosage: 150 MG
     Route: 048
     Dates: start: 20100628, end: 20110815

REACTIONS (4)
  - MALOCCLUSION [None]
  - OSTEONECROSIS OF JAW [None]
  - ARTICULAR DISC DISORDER [None]
  - JOINT LOCK [None]
